FAERS Safety Report 12210863 (Version 1)
Quarter: 2016Q1

REPORT INFORMATION
  Report Type: Report from Study
  Country: DE (occurrence: DE)
  Receive Date: 20160325
  Receipt Date: 20160325
  Transmission Date: 20160526
  Serious: Yes (Hospitalization)
  Sender: FDA-Public Use
  Company Number: DE-BIOGEN-2016BI00207983

PATIENT
  Age: 34 Year
  Sex: Female
  Weight: 69 kg

DRUGS (1)
  1. TECFIDERA [Suspect]
     Active Substance: DIMETHYL FUMARATE
     Indication: MULTIPLE SCLEROSIS
     Route: 048
     Dates: start: 201510, end: 20160115

REACTIONS (10)
  - Gastritis [Recovered/Resolved]
  - Clostridium colitis [Recovered/Resolved]
  - Tonsillitis [Recovered/Resolved]
  - Pulmonary oedema [Recovered/Resolved]
  - Myositis [Recovered/Resolved]
  - Localised oedema [Recovered/Resolved]
  - Acne [Not Recovered/Not Resolved]
  - Pancreatitis [Recovered/Resolved]
  - Flushing [Not Recovered/Not Resolved]
  - Gastrointestinal inflammation [Recovered/Resolved]

NARRATIVE: CASE EVENT DATE: 201510
